FAERS Safety Report 8806901 (Version 2)
Quarter: 2015Q2

REPORT INFORMATION
  Report Type: Report from Study
  Country: US (occurrence: US)
  Receive Date: 20120925
  Receipt Date: 20150401
  Transmission Date: 20150821
  Serious: Yes (Hospitalization)
  Sender: FDA-Public Use
  Company Number: US-ROCHE-1128199

PATIENT
  Sex: Female
  Weight: 58.18 kg

DRUGS (10)
  1. AVASTIN [Suspect]
     Active Substance: BEVACIZUMAB
     Indication: OESOPHAGEAL CARCINOMA
     Route: 042
  2. IRINOTECAN [Concomitant]
     Active Substance: IRINOTECAN
     Route: 042
  3. DOCETAXEL. [Concomitant]
     Active Substance: DOCETAXEL
     Route: 042
  4. EPIRUBICIN [Concomitant]
     Active Substance: EPIRUBICIN
  5. OXALIPLATIN. [Concomitant]
     Active Substance: OXALIPLATIN
  6. CAPECITABINE. [Suspect]
     Active Substance: CAPECITABINE
     Indication: OESOPHAGEAL CARCINOMA
     Route: 065
  7. DIOVAN [Concomitant]
     Active Substance: VALSARTAN
     Route: 065
  8. ATROPINE [Concomitant]
     Active Substance: ATROPINE
     Route: 065
  9. ONDANSETRON [Concomitant]
     Active Substance: ONDANSETRON
     Route: 065
  10. DEXAMETHASONE. [Concomitant]
     Active Substance: DEXAMETHASONE
     Route: 042

REACTIONS (8)
  - Fatigue [Recovered/Resolved]
  - Abdominal pain upper [Unknown]
  - Vomiting [Recovered/Resolved]
  - Nausea [Recovered/Resolved]
  - Disease progression [Unknown]
  - Diarrhoea [Unknown]
  - Off label use [Unknown]
  - Musculoskeletal disorder [Recovered/Resolved]
